FAERS Safety Report 6056784-2 (Version None)
Quarter: 2009Q1

REPORT INFORMATION
  Report Type: 
  Country: None (occurrence: None)
  Receive Date: 20090126
  Receipt Date: 20090107
  Transmission Date: 20090719
  Serious: Yes (Death)
  Sender: FDA-Public Use
  Company Number: B0553726A

PATIENT

DRUGS (6)
  1. PAROXETINE HYDROCHLORIDE [Suspect]
     Dosage: ORAL
  2. AMITRIPTYLINE HYDROCHLORIDE [Suspect]
  3. PREGABALIN (PREGABALIN) [Suspect]
  4. OPIATE (OPIATE) [Suspect]
  5. OXYCODONE HCL [Suspect]
  6. CYCLOBENZAPRINE HCL [Suspect]

REACTIONS (1)
  - CARDIO-RESPIRATORY ARREST [None]
